FAERS Safety Report 7383035-9 (Version None)
Quarter: 2011Q1

REPORT INFORMATION
  Report Type: 
  Country: None (occurrence: None)
  Receive Date: 20110330
  Receipt Date: 20110324
  Transmission Date: 20110831
  Serious: No
  Sender: FDA-Public Use
  Company Number: US-PFIZER INC-2011066581

PATIENT
  Sex: Male
  Weight: 82 kg

DRUGS (3)
  1. LORAZEPAM [Concomitant]
     Indication: SLEEP DISORDER
     Dosage: 1 MG, 3X/DAY
     Route: 048
     Dates: start: 20101001
  2. LYRICA [Suspect]
     Dosage: 150 MG DAILY
     Route: 048
     Dates: start: 20090801, end: 20110101
  3. LYRICA [Suspect]
     Indication: NEUROPATHY PERIPHERAL
     Dosage: 525 MG DAILY
     Route: 048
     Dates: start: 20110101

REACTIONS (6)
  - OEDEMA PERIPHERAL [None]
  - PARAESTHESIA [None]
  - PAIN IN EXTREMITY [None]
  - WEIGHT INCREASED [None]
  - HYPOAESTHESIA [None]
  - MICTURITION DISORDER [None]
